FAERS Safety Report 24150003 (Version 1)
Quarter: 2024Q3

REPORT INFORMATION
  Report Type: Report from Study
  Country: US (occurrence: US)
  Receive Date: 20240730
  Receipt Date: 20240730
  Transmission Date: 20241017
  Serious: Yes (Hospitalization)
  Sender: PACIRA
  Company Number: US-ORG100016242-2024000486

PATIENT
  Age: 86 Year
  Sex: Female

DRUGS (1)
  1. ZILRETTA [Suspect]
     Active Substance: TRIAMCINOLONE ACETONIDE
     Indication: Osteoarthritis
     Dosage: 32 MG BOTH KNEES
     Route: 065

REACTIONS (1)
  - Lower limb fracture [Unknown]

NARRATIVE: CASE EVENT DATE: 20231101
